FAERS Safety Report 6238799-4 (Version None)
Quarter: 2009Q2

REPORT INFORMATION
  Report Type: 
  Country: None (occurrence: None)
  Receive Date: 20090622
  Receipt Date: 20090615
  Transmission Date: 20091009
  Serious: Yes (Death, Other)
  Sender: FDA-Public Use
  Company Number: US-WATSON-2009-04466

PATIENT
  Sex: Female

DRUGS (1)
  1. AFEDITAB (WATSON LABORATORIES) [Suspect]
     Indication: BLOOD PRESSURE
     Dosage: UNK
     Route: 048
     Dates: start: 20081101

REACTIONS (7)
  - ANOREXIA [None]
  - CARDIAC ARREST [None]
  - COMPLICATIONS OF TRANSPLANTED KIDNEY [None]
  - EYE SWELLING [None]
  - INFLUENZA LIKE ILLNESS [None]
  - SWELLING [None]
  - SWELLING FACE [None]
